FAERS Safety Report 19846939 (Version 2)
Quarter: 2021Q4

REPORT INFORMATION
  Report Type: Report from Study
  Country: US (occurrence: US)
  Receive Date: 20210917
  Receipt Date: 20211018
  Transmission Date: 20220303
  Serious: Yes (Other)
  Sender: FDA-Public Use
  Company Number: US-BAYER-2021-190780

PATIENT
  Age: 68 Year
  Sex: Male

DRUGS (5)
  1. STIVARGA [Suspect]
     Active Substance: REGORAFENIB
     Indication: Colorectal cancer
     Dosage: DAILY DOSE 80 MG FOR 1 WEEK
     Route: 048
     Dates: start: 20210805, end: 20210811
  2. STIVARGA [Suspect]
     Active Substance: REGORAFENIB
     Indication: Colorectal cancer
     Dosage: DAILY DOSE 120 MG FOR 2 WEEK
     Route: 048
     Dates: start: 20210812
  3. STIVARGA [Suspect]
     Active Substance: REGORAFENIB
     Indication: Colorectal cancer
     Dosage: UNK
     Dates: start: 20210818, end: 20210905
  4. STIVARGA [Suspect]
     Active Substance: REGORAFENIB
     Indication: Colorectal cancer
     Dosage: 80 MG, QD
     Route: 048
     Dates: start: 20210906, end: 20210930
  5. STIVARGA [Suspect]
     Active Substance: REGORAFENIB
     Indication: Colorectal cancer
     Dosage: 80 MG, QD
     Dates: start: 20210930

REACTIONS (15)
  - Mobility decreased [None]
  - Haematochezia [Unknown]
  - Decreased activity [Recovering/Resolving]
  - Asthenia [Unknown]
  - Dry throat [Unknown]
  - Exercise tolerance decreased [Unknown]
  - Pain in extremity [None]
  - Off label use [Not Recovered/Not Resolved]
  - Fatigue [Recovering/Resolving]
  - Product dose omission issue [None]
  - Decreased appetite [None]
  - Weight decreased [Unknown]
  - Nausea [Recovering/Resolving]
  - Impaired self-care [None]
  - Constipation [Recovering/Resolving]

NARRATIVE: CASE EVENT DATE: 20210805
